FAERS Safety Report 5506785-5 (Version None)
Quarter: 2007Q4

REPORT INFORMATION
  Report Type: 
  Country: None (occurrence: None)
  Receive Date: 20071101
  Receipt Date: 20071025
  Transmission Date: 20080405
  Serious: Yes (Other)
  Sender: FDA-Public Use
  Company Number: CHPA2007US11256

PATIENT
  Sex: Male

DRUGS (1)
  1. 4 WAY NASAL DECONGESTANT MOISTURIZING RELIEF (NCH) (XYLOMETAZOLINE HYD [Suspect]
     Dosage: ONCE/SINGLE, NASAL
     Route: 045
     Dates: start: 20071024

REACTIONS (2)
  - LIP SWELLING [None]
  - SWELLING FACE [None]
